FAERS Safety Report 8372015-2 (Version None)
Quarter: 2012Q2

REPORT INFORMATION
  Report Type: 
  Country: None (occurrence: None)
  Receive Date: 20120518
  Receipt Date: 20120502
  Transmission Date: 20120825
  Serious: Yes (Hospitalization, Other)
  Sender: FDA-Public Use
  Company Number: CHPA2012US010309

PATIENT
  Sex: Female

DRUGS (1)
  1. BENEFIBER PLUS CALCIUM WITH WHEAT DEXTRIN [Suspect]
     Indication: NUTRITIONAL SUPPORT
     Dosage: 2 TSP, PRN
     Route: 048
     Dates: start: 20090101

REACTIONS (5)
  - EXPIRED DRUG ADMINISTERED [None]
  - HERPES ZOSTER [None]
  - ULCER HAEMORRHAGE [None]
  - VOMITING [None]
  - UNDERDOSE [None]
